FAERS Safety Report 15685463 (Version 4)
Quarter: 2019Q3

REPORT INFORMATION
  Report Type: Spontaneous
  Country: US (occurrence: US)
  Receive Date: 20181204
  Receipt Date: 20190809
  Transmission Date: 20191004
  Serious: No
  Sender: FDA-Public Use
  Company Number: US-PFIZER INC-2018494393

PATIENT
  Age: 72 Year
  Sex: Male
  Weight: 95 kg

DRUGS (1)
  1. ELELYSO [Suspect]
     Active Substance: TALIGLUCERASE ALFA
     Indication: FATIGUE
     Dosage: DOUBLE DOSE

REACTIONS (4)
  - Drug effective for unapproved indication [Unknown]
  - Drug tolerance [Unknown]
  - Off label use [Unknown]
  - Drug hypersensitivity [Unknown]
